FAERS Safety Report 6222370-4 (Version None)
Quarter: 2009Q2

REPORT INFORMATION
  Report Type: 
  Country: None (occurrence: None)
  Receive Date: 20090611
  Receipt Date: 20090522
  Transmission Date: 20091009
  Serious: Yes (Hospitalization)
  Sender: FDA-Public Use
  Company Number: FR-GENENTECH-283832

PATIENT
  Age: 44 Year
  Sex: Female

DRUGS (6)
  1. MABTHERA [Suspect]
     Indication: NON-HODGKIN'S LYMPHOMA
     Dosage: 375 MG/M2, UNK
     Route: 042
  2. BLEOMYCIN SULFATE [Suspect]
     Indication: NON-HODGKIN'S LYMPHOMA
     Dosage: 10 MG, UNK
     Route: 042
  3. CYCLOPHOSPHAMIDE [Suspect]
     Indication: NON-HODGKIN'S LYMPHOMA
     Dosage: 1200 MG/M2, UNK
     Route: 042
  4. DOXORUBICIN HCL [Suspect]
     Indication: NON-HODGKIN'S LYMPHOMA
     Dosage: 75 MG/M2, UNK
     Route: 042
  5. VINDESINE [Suspect]
     Indication: NON-HODGKIN'S LYMPHOMA
     Dosage: 2 MG/M2, UNK
     Route: 042
  6. PREDNISONE [Concomitant]
     Indication: DRUG USE FOR UNKNOWN INDICATION
     Dosage: 10 MG, UNK
     Route: 042
     Dates: start: 20081121

REACTIONS (2)
  - PANCYTOPENIA [None]
  - RADIATION MUCOSITIS [None]
